FAERS Safety Report 22117971 (Version 1)
Quarter: 2023Q1

REPORT INFORMATION
  Report Type: Spontaneous
  Country: US (occurrence: None)
  Receive Date: 20230321
  Receipt Date: 20230321
  Transmission Date: 20230417
  Serious: No
  Sender: FDA-Public Use
  Company Number: US-ROCHE-3241682

PATIENT
  Age: 74 Year
  Sex: Female

DRUGS (3)
  1. VABYSMO [Suspect]
     Active Substance: FARICIMAB-SVOA
     Indication: Neovascular age-related macular degeneration
     Dosage: 4 WEEKS BETWEEN HER 1ST AND 2ND INJECTION AND WILL BE GOING OUT SIX WEEKS BETWEEN HER 2ND AND 3RD IN
     Route: 050
     Dates: start: 202210
  2. LUCENTIS [Suspect]
     Active Substance: RANIBIZUMAB
     Indication: Neovascular age-related macular degeneration
     Route: 050
  3. RITUXIMAB [Suspect]
     Active Substance: RITUXIMAB
     Indication: Neovascular age-related macular degeneration
     Route: 065

REACTIONS (6)
  - Off label use [Unknown]
  - Vitreous floaters [Recovered/Resolved]
  - Injection site pain [Recovering/Resolving]
  - Eye swelling [Recovered/Resolved]
  - Somnolence [Recovered/Resolved]
  - Vision blurred [Recovered/Resolved]
